FAERS Safety Report 7574618-1 (Version None)
Quarter: 2011Q2

REPORT INFORMATION
  Report Type: 
  Country: None (occurrence: None)
  Receive Date: 20110627
  Receipt Date: 20110131
  Transmission Date: 20111010
  Serious: Yes (Hospitalization)
  Sender: FDA-Public Use
  Company Number: US-BAYER-201039326NA

PATIENT
  Age: 44 Year
  Sex: Female
  Weight: 73.923 kg

DRUGS (11)
  1. CHANTIX [Concomitant]
     Indication: EX-TOBACCO USER
  2. ATIVAN [Concomitant]
     Indication: ANXIETY
  3. PROZAC [Concomitant]
     Indication: PREMENSTRUAL SYNDROME
  4. YASMIN [Suspect]
     Indication: CONTRACEPTION
     Dosage: UNK
     Dates: start: 20070417, end: 20070616
  5. YASMIN [Suspect]
     Indication: MOOD SWINGS
  6. ATIVAN [Concomitant]
     Indication: SLEEP DISORDER
  7. YAZ [Suspect]
     Indication: CONTRACEPTION
  8. YAZ [Suspect]
     Indication: MOOD SWINGS
     Route: 048
     Dates: start: 20070417, end: 20070616
  9. VICODIN [Concomitant]
     Indication: PAIN
  10. PAXIL [Concomitant]
     Indication: AFFECTIVE DISORDER
  11. NEXIUM [Concomitant]
     Indication: GASTROOESOPHAGEAL REFLUX DISEASE

REACTIONS (1)
  - PULMONARY EMBOLISM [None]
